FAERS Safety Report 5944568-2 (Version None)
Quarter: 2008Q4

REPORT INFORMATION
  Report Type: 
  Country: None (occurrence: None)
  Receive Date: 20081107
  Receipt Date: 20081031
  Transmission Date: 20090506
  Serious: Yes (Other)
  Sender: FDA-Public Use
  Company Number: US-BAYER-200813526BCC

PATIENT
  Age: 77 Year
  Sex: Male
  Weight: 75 kg

DRUGS (5)
  1. ASPIRIN [Suspect]
     Indication: ISCHAEMIC HEART DISEASE PROPHYLAXIS
     Dosage: TOTAL DAILY DOSE: 81 MG  UNIT DOSE: 81 MG
     Route: 048
     Dates: start: 20050101, end: 20080701
  2. COUMADIN [Suspect]
     Indication: HEART VALVE REPLACEMENT
     Route: 048
     Dates: start: 20080101
  3. COUMADIN [Suspect]
     Dates: start: 19990101
  4. LOVENOX [Suspect]
     Indication: ANTICOAGULANT THERAPY
     Dates: start: 20080101
  5. LISINOPRIL [Concomitant]
     Dosage: AS USED: 2.5 MG
     Route: 048

REACTIONS (4)
  - BLEEDING TIME PROLONGED [None]
  - PLATELET COUNT DECREASED [None]
  - TONGUE HAEMORRHAGE [None]
  - TONGUE INJURY [None]
